FAERS Safety Report 25811603 (Version 1)
Quarter: 2025Q3

REPORT INFORMATION
  Report Type: Spontaneous
  Country: US (occurrence: US)
  Receive Date: 20250917
  Receipt Date: 20250917
  Transmission Date: 20251020
  Serious: Yes (Hospitalization)
  Sender: AMGEN
  Company Number: US-AMGEN-USASP2025182105

PATIENT
  Age: 4 Month
  Sex: Male
  Weight: 8.5 kg

DRUGS (6)
  1. FILGRASTIM [Suspect]
     Active Substance: FILGRASTIM
     Indication: Neutropenia
     Dosage: 10 MICROGRAM/KILOGRAM, QD (2 DOSES ON DAYS 29 AND 30)
     Route: 058
  2. FILGRASTIM [Suspect]
     Active Substance: FILGRASTIM
     Indication: Off label use
     Route: 058
  3. CEFOTAXIME [Suspect]
     Active Substance: CEFOTAXIME SODIUM
     Indication: Meningitis bacterial
     Dosage: 75 MILLIGRAM/KILOGRAM, Q6H
     Route: 040
  4. VANCOMYCIN [Suspect]
     Active Substance: VANCOMYCIN
     Indication: Meningitis bacterial
     Dosage: 15 MILLIGRAM/KILOGRAM, Q6H
     Route: 040
  5. ACYCLOVIR [Suspect]
     Active Substance: ACYCLOVIR
     Indication: Meningitis bacterial
     Dosage: 15 MILLIGRAM/KILOGRAM, Q8H
     Route: 040
  6. GENTAMICIN [Suspect]
     Active Substance: GENTAMICIN
     Indication: Meningitis bacterial
     Dosage: 2.5 MILLIGRAM/KILOGRAM, Q8MO
     Route: 040

REACTIONS (2)
  - Neutrophil count decreased [Recovering/Resolving]
  - Off label use [Unknown]
